FAERS Safety Report 8196687-0 (Version None)
Quarter: 2012Q1

REPORT INFORMATION
  Report Type: 
  Country: None (occurrence: None)
  Receive Date: 20120309
  Receipt Date: 20120302
  Transmission Date: 20120608
  Serious: Yes (Other)
  Sender: FDA-Public Use
  Company Number: US-BAYER-2011-033764

PATIENT
  Age: 28 Year
  Sex: Female
  Weight: 113.38 kg

DRUGS (15)
  1. IBUPROFEN [Concomitant]
     Dosage: 800 MG, PRN
  2. SYNTHROID [Concomitant]
     Dosage: , QD
     Route: 048
     Dates: start: 20061019
  3. INDOMETHACIN [Concomitant]
     Indication: GOUT
     Dosage: UNK
     Dates: start: 20061201
  4. TORADOL [Concomitant]
     Dosage: 60 MG, UNK
     Dates: start: 20060930, end: 20061002
  5. CIPROFLOXACIN [Concomitant]
     Dosage: 500 MG, UNK
     Route: 048
     Dates: start: 20061031
  6. PERCOCET [Concomitant]
     Indication: PAIN
     Dosage: TAKE EVERY 4 TO 6 HOURS AS NEEDED
     Dates: start: 20061214
  7. AUGMENTIN '125' [Concomitant]
     Indication: SINUSITIS
     Dosage: UNK
     Dates: start: 20060930
  8. ROCEPHIN [Concomitant]
     Indication: SINUSITIS
     Dosage: 1 G, UNK
     Route: 030
     Dates: start: 20060930, end: 20061002
  9. FASTIN [Concomitant]
     Dosage: 30 MG, QD
     Route: 048
     Dates: start: 20061019
  10. ULTRAM [Concomitant]
     Indication: PAIN
     Dosage: UNK
     Dates: start: 20061113
  11. YASMIN [Suspect]
     Indication: CONTRACEPTION
     Dosage: UNK
     Dates: start: 20061101, end: 20061227
  12. AMOXICILLIN [Concomitant]
     Dosage: UNK
     Route: 048
     Dates: start: 20060919
  13. LEVOTHYROXINE SODIUM [Concomitant]
     Dosage: UNK
     Route: 048
     Dates: start: 19960101
  14. METFORMIN HCL [Concomitant]
     Dosage: 500 MG, OM
     Route: 048
     Dates: start: 20061113
  15. FIORINAL [Concomitant]
     Indication: PAIN
     Dosage: 1.2 TABLETS Q 4-6 HOURS MAX, PRN
     Route: 048
     Dates: start: 20061002

REACTIONS (6)
  - DEEP VEIN THROMBOSIS [None]
  - ANXIETY [None]
  - PAIN IN EXTREMITY [None]
  - GENERAL PHYSICAL HEALTH DETERIORATION [None]
  - EMOTIONAL DISTRESS [None]
  - OEDEMA PERIPHERAL [None]
